FAERS Safety Report 5320513-8 (Version None)
Quarter: 2007Q2

REPORT INFORMATION
  Report Type: 
  Country: None (occurrence: None)
  Receive Date: 20070509
  Receipt Date: 20070502
  Transmission Date: 20071010
  Serious: Yes (Other)
  Sender: FDA-Public Use
  Company Number: FR-JNJFOC-20070200500

PATIENT
  Sex: Male

DRUGS (2)
  1. RISPERDAL [Suspect]
     Indication: AGGRESSION
     Route: 048
  2. RISPERDAL [Suspect]
     Indication: AGITATION
     Route: 048

REACTIONS (1)
  - BLOOD ALKALINE PHOSPHATASE INCREASED [None]
